FAERS Safety Report 25142747 (Version 2)
Quarter: 2025Q2

REPORT INFORMATION
  Report Type: Spontaneous
  Country: US (occurrence: US)
  Receive Date: 20250331
  Receipt Date: 20250623
  Transmission Date: 20250716
  Serious: Yes (Other)
  Sender: SANOFI AVENTIS
  Company Number: US-SA-2025SA089209

PATIENT
  Age: 23 Year
  Sex: Male
  Weight: 59.09 kg

DRUGS (3)
  1. DUPIXENT [Suspect]
     Active Substance: DUPILUMAB
     Indication: Asthma
     Dosage: 300 MG, QOW
     Route: 058
     Dates: start: 20250226
  2. DUPIXENT [Suspect]
     Active Substance: DUPILUMAB
     Indication: Nasal polyps
  3. DOXYCYCLINE [Concomitant]
     Active Substance: DOXYCYCLINE
     Indication: Ear infection

REACTIONS (8)
  - Pneumonia [Not Recovered/Not Resolved]
  - Pulmonary pain [Not Recovered/Not Resolved]
  - Condition aggravated [Not Recovered/Not Resolved]
  - Disorientation [Recovered/Resolved]
  - Hyperhidrosis [Recovered/Resolved]
  - Nausea [Recovered/Resolved]
  - Dyspnoea [Recovered/Resolved]
  - Dizziness [Recovered/Resolved]

NARRATIVE: CASE EVENT DATE: 20250321
